FAERS Safety Report 9062686 (Version 2)
Quarter: 2013Q3

REPORT INFORMATION
  Report Type: Spontaneous
  Country: US (occurrence: US)
  Receive Date: 20130213
  Receipt Date: 20130703
  Transmission Date: 20140515
  Serious: Yes (Hospitalization, Other)
  Sender: FDA-Public Use
  Company Number: US-CELGENEUS-163-21880-12112903

PATIENT
  Age: 58 Year
  Sex: Female
  Weight: 90 kg

DRUGS (80)
  1. REVLIMID [Suspect]
     Indication: PLASMA CELL MYELOMA
     Dosage: 25 MILLIGRAM
     Route: 048
     Dates: start: 20121002, end: 20121028
  2. DEXAMETHASONE [Suspect]
     Indication: PLASMA CELL MYELOMA
     Dosage: 5.7 MILLIGRAM
     Route: 048
     Dates: start: 20120925, end: 20121028
  3. ELOTUZUMAB [Suspect]
     Indication: PLASMA CELL MYELOMA
     Route: 065
  4. VANCOMYCIN [Concomitant]
     Indication: BACTERIAL INFECTION
     Route: 065
     Dates: start: 20121022, end: 20121104
  5. VANCOMYCIN [Concomitant]
     Indication: ADVERSE EVENT
     Route: 065
     Dates: start: 20121111, end: 20121113
  6. VANCOMYCIN [Concomitant]
     Route: 065
     Dates: start: 20130129, end: 20130131
  7. BACTRIM [Concomitant]
     Indication: URINARY TRACT INFECTION
     Route: 065
  8. CITALOPRAM [Concomitant]
     Indication: PRODUCT USED FOR UNKNOWN INDICATION
     Route: 065
     Dates: start: 20120925
  9. GLUCOSAMINE-CHONDROITIN [Concomitant]
     Indication: PRODUCT USED FOR UNKNOWN INDICATION
     Route: 065
     Dates: start: 2005
  10. LEVOTHYROXINE [Concomitant]
     Indication: PRODUCT USED FOR UNKNOWN INDICATION
     Route: 065
     Dates: start: 2008
  11. LORAZEPAM [Concomitant]
     Indication: PRODUCT USED FOR UNKNOWN INDICATION
     Route: 065
     Dates: start: 2012
  12. OMEPRAZOLE [Concomitant]
     Indication: PRODUCT USED FOR UNKNOWN INDICATION
     Route: 065
     Dates: start: 2008
  13. MULTIVITAMIN SUPPLEMENT [Concomitant]
     Indication: PRODUCT USED FOR UNKNOWN INDICATION
     Route: 065
     Dates: start: 2005
  14. PRESERVISION WITH LUTEIN [Concomitant]
     Indication: PRODUCT USED FOR UNKNOWN INDICATION
     Route: 065
     Dates: start: 2005
  15. MAGNESIUM SULFATE [Concomitant]
     Indication: ADVERSE EVENT
     Route: 065
     Dates: start: 20121022, end: 20121103
  16. MAGNESIUM SULFATE [Concomitant]
     Route: 065
     Dates: start: 20121218, end: 20121218
  17. MAGNESIUM SULFATE [Concomitant]
     Route: 065
     Dates: start: 20130129, end: 20130131
  18. POTASSIUM CHLORIDE [Concomitant]
     Indication: ADVERSE EVENT
     Route: 065
     Dates: start: 20121022, end: 20121103
  19. POTASSIUM CHLORIDE [Concomitant]
     Route: 065
     Dates: start: 20121111, end: 20121113
  20. POTASSIUM CHLORIDE [Concomitant]
     Route: 065
     Dates: start: 20121218, end: 20121227
  21. POTASSIUM CHLORIDE [Concomitant]
     Route: 065
     Dates: start: 20130130, end: 20130131
  22. FUROSEMIDE [Concomitant]
     Indication: ADVERSE EVENT
     Route: 065
     Dates: start: 20121022, end: 20121025
  23. PANTOPRAZOLE [Concomitant]
     Indication: ADVERSE EVENT
     Route: 065
     Dates: start: 20121022, end: 20121023
  24. PANTOPRAZOLE [Concomitant]
     Route: 065
     Dates: start: 20130129, end: 20130131
  25. MORPHINE [Concomitant]
     Indication: ADVERSE EVENT
     Route: 065
     Dates: start: 20121218, end: 20121226
  26. HEPARIN [Concomitant]
     Indication: ADVERSE EVENT
     Route: 065
     Dates: start: 20121022, end: 20121115
  27. HEPARIN [Concomitant]
     Dates: start: 20121221
  28. SODIUM PHOSPHATE/POTASSIUM PHOSPHATE [Concomitant]
     Indication: ADVERSE EVENT
     Route: 065
     Dates: start: 20121023, end: 20121031
  29. CALCIUM CHLORIDE [Concomitant]
     Indication: ADVERSE EVENT
     Route: 065
     Dates: start: 20121023, end: 20121023
  30. AZTREONAM [Concomitant]
     Indication: ADVERSE EVENT
     Route: 065
     Dates: start: 20121022, end: 20121104
  31. MOXIFLOXACIN [Concomitant]
     Indication: ADVERSE EVENT
     Route: 065
     Dates: start: 20121022, end: 20121022
  32. MOXIFLOXACIN [Concomitant]
     Dates: start: 20121216, end: 20121216
  33. ESOMEPRAZOLE [Concomitant]
     Indication: PRODUCT USED FOR UNKNOWN INDICATION
     Route: 065
     Dates: start: 20121022, end: 20121107
  34. ASPIRIN [Concomitant]
     Indication: ADVERSE EVENT
     Route: 065
     Dates: start: 20121022
  35. DILTIAZEM [Concomitant]
     Indication: ADVERSE EVENT
     Route: 065
     Dates: start: 20121022
  36. IPRATROPIUM [Concomitant]
     Indication: ADVERSE EVENT
     Route: 065
     Dates: start: 20121023, end: 20121024
  37. ENOXAPARIN [Concomitant]
     Indication: ADVERSE EVENT
     Route: 065
     Dates: start: 20121023, end: 20121029
  38. ENOXAPARIN [Concomitant]
     Route: 065
     Dates: start: 20121111, end: 20121115
  39. ENOXAPARIN [Concomitant]
     Route: 065
     Dates: start: 20121218, end: 20121227
  40. CYCLOBENZAPRINE [Concomitant]
     Indication: ADVERSE EVENT
     Route: 065
     Dates: start: 20121022, end: 20121029
  41. HYDROCODONE/ACETAMINOPHEN [Concomitant]
     Indication: ADVERSE EVENT
     Route: 065
     Dates: start: 20121022, end: 20121026
  42. HYDROMORPHONE [Concomitant]
     Indication: ADVERSE EVENT
     Route: 065
     Dates: start: 20121024, end: 20121106
  43. DOCUSATE [Concomitant]
     Indication: ADVERSE EVENT
     Route: 065
     Dates: start: 20121025
  44. GABAPENTIN [Concomitant]
     Indication: ADVERSE EVENT
     Route: 065
     Dates: start: 20121026
  45. ACETAMINOPHEN [Concomitant]
     Indication: ADVERSE EVENT
     Route: 065
     Dates: start: 20121026
  46. POLYETHYLENE GLYCOL [Concomitant]
     Indication: ADVERSE EVENT
     Route: 065
     Dates: start: 20121026, end: 20121104
  47. LIDOCAINE [Concomitant]
     Indication: ADVERSE EVENT
     Route: 065
     Dates: start: 20121027
  48. OXYCODONE [Concomitant]
     Indication: ADVERSE EVENT
     Route: 065
     Dates: start: 20121027
  49. BISACODYL [Concomitant]
     Indication: ADVERSE EVENT
     Route: 065
     Dates: start: 20121025
  50. SENNA [Concomitant]
     Indication: ADVERSE EVENT
     Route: 065
     Dates: start: 20121025, end: 20121030
  51. OXYMETAZOLINE [Concomitant]
     Indication: ADVERSE EVENT
     Route: 065
     Dates: start: 20121030, end: 20121031
  52. BACLOFEN [Concomitant]
     Indication: ADVERSE EVENT
     Route: 065
     Dates: start: 20121030
  53. CIPROFLOXACIN [Concomitant]
     Indication: ADVERSE EVENT
     Route: 065
     Dates: start: 20121113, end: 20121113
  54. MEROPENEM [Concomitant]
     Indication: ADVERSE EVENT
     Route: 065
     Dates: start: 20121111, end: 20121113
  55. SULFAMETHOXAZOLE/TRIMETHOPRIM [Concomitant]
     Indication: ADVERSE EVENT
     Route: 065
     Dates: start: 20121113, end: 20121116
  56. K-PHOS NEUTRAL [Concomitant]
     Indication: ADVERSE EVENT
     Route: 065
     Dates: start: 20121023, end: 20121031
  57. K-PHOS NEUTRAL [Concomitant]
     Route: 065
     Dates: start: 20121220, end: 20121220
  58. LEVOPHED [Concomitant]
     Indication: ADVERSE EVENT
     Route: 065
     Dates: start: 20121216, end: 20121216
  59. GENTAMICIN [Concomitant]
     Indication: ADVERSE EVENT
     Route: 065
     Dates: start: 20121218, end: 20121218
  60. CALCIUM GLUCONATE [Concomitant]
     Indication: ADVERSE EVENT
     Route: 065
     Dates: start: 20121218, end: 20121218
  61. CALCIUM GLUCONATE [Concomitant]
     Route: 065
     Dates: start: 20130129, end: 20130131
  62. SODIUM PHOSPHATE [Concomitant]
     Indication: ADVERSE EVENT
     Route: 065
     Dates: start: 20121218, end: 20121227
  63. SODIUM PHOSPHATE [Concomitant]
     Route: 065
     Dates: start: 20130129, end: 20130129
  64. CEFEPIME [Concomitant]
     Indication: ADVERSE EVENT
     Route: 065
     Dates: start: 20121218, end: 20121228
  65. CEFEPIME [Concomitant]
     Route: 065
     Dates: start: 20130129, end: 20130131
  66. LINEZOLID [Concomitant]
     Indication: ADVERSE EVENT
     Route: 065
     Dates: start: 20121218, end: 20121228
  67. LINEZOLID [Concomitant]
     Route: 065
     Dates: start: 20130129, end: 20130131
  68. GUAIFENESIN [Concomitant]
     Indication: ADVERSE EVENT
     Route: 065
     Dates: start: 20121219
  69. NOREPINEPHRINE [Concomitant]
     Indication: ADVERSE EVENT
     Route: 065
     Dates: start: 20121218, end: 20121218
  70. NOREPINEPHRINE [Concomitant]
     Route: 065
     Dates: start: 20130129, end: 20130131
  71. ONDANSETRON [Concomitant]
     Indication: ADVERSE EVENT
     Route: 065
     Dates: start: 20121220, end: 20121227
  72. DRONABINOL [Concomitant]
     Indication: ADVERSE EVENT
     Route: 065
     Dates: start: 20121226, end: 20130118
  73. AMIODARONE [Concomitant]
     Indication: ADVERSE EVENT
     Route: 065
     Dates: start: 20130129, end: 20130131
  74. CHLORHEXIDINE GLUCONATE [Concomitant]
     Indication: ADVERSE EVENT
     Route: 065
     Dates: start: 20130129, end: 20130131
  75. AZITHROMYCIN [Concomitant]
     Indication: ADVERSE EVENT
     Route: 065
     Dates: start: 20130129, end: 20130131
  76. DIPHENHYDRAMINE [Concomitant]
     Indication: ADVERSE EVENT
     Route: 065
     Dates: start: 20130129, end: 20130131
  77. MIDAZOLAM [Concomitant]
     Indication: ADVERSE EVENT
     Route: 065
     Dates: start: 20130129, end: 20130131
  78. VORICONAZOLE [Concomitant]
     Indication: ADVERSE EVENT
     Dates: start: 20130129, end: 20130131
  79. FENTANYL [Concomitant]
     Indication: ADVERSE EVENT
     Route: 065
     Dates: start: 20130129, end: 20130131
  80. EPINEPHRINE [Concomitant]
     Indication: ADVERSE EVENT
     Route: 065
     Dates: start: 20130131, end: 20130201

REACTIONS (4)
  - Atelectasis [Recovered/Resolved]
  - Bacteraemia [Recovered/Resolved]
  - Back pain [Recovered/Resolved]
  - Pneumonia [Recovered/Resolved]
